FAERS Safety Report 9685913 (Version 1)
Quarter: 2013Q4

REPORT INFORMATION
  Report Type: Spontaneous
  Country: US (occurrence: US)
  Receive Date: 20131113
  Receipt Date: 20131113
  Transmission Date: 20140711
  Serious: No
  Sender: FDA-Public Use
  Company Number: US-ALLERGAN-1312957US

PATIENT
  Sex: Male

DRUGS (3)
  1. COMBIGAN[R] [Suspect]
     Indication: INTRAOCULAR PRESSURE INCREASED
  2. DORZOLAMIDE [Concomitant]
     Indication: INTRAOCULAR PRESSURE INCREASED
  3. XALATAN [Concomitant]
     Indication: INTRAOCULAR PRESSURE INCREASED
     Dosage: UNK

REACTIONS (1)
  - Lacrimation increased [Unknown]
